FAERS Safety Report 6409033-7 (Version None)
Quarter: 2009Q4

REPORT INFORMATION
  Report Type: 
  Country: None (occurrence: None)
  Receive Date: 20091019
  Receipt Date: 20091019
  Transmission Date: 20100525
  Serious: Yes (Life-Threatening, Other)
  Sender: FDA-Public Use
  Company Number: None

PATIENT
  Age: 52 Year
  Sex: Male
  Weight: 102.0593 kg

DRUGS (1)
  1. FERRLECIT [Suspect]
     Indication: ANAEMIA
     Dosage: ? 10 TREATMENTS IV DRIP 2 TREATMENTS
     Route: 041
     Dates: start: 20091012, end: 20091014

REACTIONS (12)
  - CHILLS [None]
  - DECREASED APPETITE [None]
  - DISCOMFORT [None]
  - DYSPNOEA [None]
  - FATIGUE [None]
  - FEELING ABNORMAL [None]
  - HEADACHE [None]
  - HEART RATE DECREASED [None]
  - HYPOVENTILATION [None]
  - INFLUENZA [None]
  - NAUSEA [None]
  - RESPIRATORY RATE DECREASED [None]
